FAERS Safety Report 8086256-5 (Version None)
Quarter: 2012Q1

REPORT INFORMATION
  Report Type: 
  Country: None (occurrence: None)
  Receive Date: 20120128
  Receipt Date: 20110425
  Transmission Date: 20120608
  Serious: No
  Sender: FDA-Public Use
  Company Number: US-ABBOTT-11P-163-0722360-00

PATIENT
  Sex: Female

DRUGS (4)
  1. LUCOVOREN [Concomitant]
     Indication: PRODUCT USED FOR UNKNOWN INDICATION
  2. ALBUTEROL [Concomitant]
     Indication: BRONCHITIS
     Dosage: NEBULIZER
     Route: 055
     Dates: start: 20110425
  3. HUMIRA [Suspect]
     Indication: RHEUMATOID ARTHRITIS
     Route: 058
     Dates: start: 20080101
  4. METHOTREXATE [Concomitant]
     Indication: PRODUCT USED FOR UNKNOWN INDICATION

REACTIONS (6)
  - ASTHMA [None]
  - PRODUCTIVE COUGH [None]
  - WHEEZING [None]
  - SINUS CONGESTION [None]
  - PYREXIA [None]
  - BRONCHITIS [None]
